FAERS Safety Report 14338313 (Version 1)
Quarter: 2017Q4

REPORT INFORMATION
  Report Type: Spontaneous
  Country: ES (occurrence: ES)
  Receive Date: 20171229
  Receipt Date: 20171229
  Transmission Date: 20180321
  Serious: Yes (Other)
  Sender: FDA-Public Use
  Company Number: ES-MYLANLABS-2017M1082981

PATIENT
  Age: 42 Year
  Sex: Female

DRUGS (14)
  1. TOPIRAMATE. [Suspect]
     Active Substance: TOPIRAMATE
     Indication: GENERALISED TONIC-CLONIC SEIZURE
  2. VALPROIC ACID. [Concomitant]
     Active Substance: VALPROIC ACID
     Indication: PETIT MAL EPILEPSY
     Dosage: 1500 MG, QD
  3. CLOBAZAM [Concomitant]
     Active Substance: CLOBAZAM
     Indication: GENERALISED TONIC-CLONIC SEIZURE
  4. ZONISAMIDE. [Suspect]
     Active Substance: ZONISAMIDE
     Indication: GENERALISED TONIC-CLONIC SEIZURE
     Dosage: 500 MG, QD
  5. TOPIRAMATE. [Suspect]
     Active Substance: TOPIRAMATE
     Indication: PETIT MAL EPILEPSY
     Dosage: 400 MG, QD
  6. LAMOTRIGINE. [Concomitant]
     Active Substance: LAMOTRIGINE
     Indication: GENERALISED TONIC-CLONIC SEIZURE
  7. CLOBAZAM [Concomitant]
     Active Substance: CLOBAZAM
     Indication: PETIT MAL EPILEPSY
     Dosage: 30 MG, QD
  8. LAMOTRIGINE. [Concomitant]
     Active Substance: LAMOTRIGINE
     Indication: PETIT MAL EPILEPSY
     Dosage: 100 MG, QD
  9. LEVETIRACETAM. [Suspect]
     Active Substance: LEVETIRACETAM
     Indication: PETIT MAL EPILEPSY
  10. ZONISAMIDE. [Suspect]
     Active Substance: ZONISAMIDE
     Indication: PETIT MAL EPILEPSY
  11. LEVETIRACETAM. [Suspect]
     Active Substance: LEVETIRACETAM
     Indication: GENERALISED TONIC-CLONIC SEIZURE
     Dosage: 1500 MG, QD
  12. PROGESTERONE. [Suspect]
     Active Substance: PROGESTERONE
     Indication: PETIT MAL EPILEPSY
     Dosage: 100 MG, 3X/DAY (TID) DURING THE SECOND HALF OF THE MENSTRUAL CYCLE
  13. PROGESTERONE. [Suspect]
     Active Substance: PROGESTERONE
     Indication: GENERALISED TONIC-CLONIC SEIZURE
  14. VALPROIC ACID. [Concomitant]
     Active Substance: VALPROIC ACID
     Indication: GENERALISED TONIC-CLONIC SEIZURE
     Dosage: 1000 MG, QD

REACTIONS (3)
  - Multiple-drug resistance [Unknown]
  - Suicidal behaviour [Unknown]
  - Depressed mood [Unknown]
